FAERS Safety Report 5169173-X (Version None)
Quarter: 2006Q4

REPORT INFORMATION
  Report Type: 
  Country: None (occurrence: None)
  Receive Date: 20061211
  Receipt Date: 20061204
  Transmission Date: 20070319
  Serious: Yes (Life-Threatening)
  Sender: FDA-Public Use
  Company Number: 2006SE06594

PATIENT
  Age: 33 Year
  Sex: Female
  Weight: 91 kg

DRUGS (2)
  1. BUPIVACAINE [Suspect]
     Indication: SPINAL ANAESTHESIA
  2. BUPIVACAINE [Suspect]
     Indication: CAESAREAN SECTION

REACTIONS (3)
  - ANAPHYLACTIC SHOCK [None]
  - DRUG EXPOSURE DURING PREGNANCY [None]
  - NEUROGENIC SHOCK [None]
